FAERS Safety Report 19923461 (Version 1)
Quarter: 2021Q4

REPORT INFORMATION
  Report Type: Report from Study
  Country: GT (occurrence: GT)
  Receive Date: 20211005
  Receipt Date: 20211005
  Transmission Date: 20220303
  Serious: Yes (Death, Other)
  Sender: FDA-Public Use
  Company Number: GT-NOVARTISPH-NVSC2021GT227184

PATIENT
  Age: 79 Year
  Sex: Female

DRUGS (1)
  1. SACUBITRIL\VALSARTAN [Suspect]
     Active Substance: SACUBITRIL\VALSARTAN
     Indication: Product used for unknown indication
     Dosage: 200 MG (START DATE: APPROXIMATELY MORE THAN 1 YEAR AGO)
     Route: 065

REACTIONS (2)
  - Death [Fatal]
  - Hypokinesia [Unknown]
